FAERS Safety Report 10248490 (Version 1)
Quarter: 2014Q2

REPORT INFORMATION
  Report Type: Spontaneous
  Country: CO (occurrence: CO)
  Receive Date: 20140620
  Receipt Date: 20140620
  Transmission Date: 20141212
  Serious: Yes (Hospitalization, Other)
  Sender: FDA-Public Use
  Company Number: CO-BRISTOL-MYERS SQUIBB COMPANY-21011697

PATIENT
  Age: 56 Year
  Sex: Female

DRUGS (5)
  1. BYDUREON [Suspect]
     Route: 058
  2. INSULIN [Suspect]
  3. INSULIN BASAL H [Suspect]
  4. INSULIN GLULISINE [Suspect]
  5. LANTUS [Suspect]

REACTIONS (3)
  - Hyperglycaemia [Unknown]
  - Diabetic ketoacidosis [Unknown]
  - Intentional product misuse [Unknown]
